FAERS Safety Report 7285892-3 (Version None)
Quarter: 2011Q1

REPORT INFORMATION
  Report Type: 
  Country: None (occurrence: None)
  Receive Date: 20110210
  Receipt Date: 20110126
  Transmission Date: 20110831
  Serious: Yes (Death, Other)
  Sender: FDA-Public Use
  Company Number: JP-PFIZER INC-2011018047

PATIENT
  Age: 35 Year
  Sex: Male

DRUGS (3)
  1. LINEZOLID [Suspect]
     Indication: STAPHYLOCOCCAL INFECTION
     Route: 065
  2. VANCOMYCIN [Suspect]
     Indication: BACTERIAL INFECTION
     Dosage: AROUND 20 MICROG/ML
  3. PIPERACILLIN SODIUM/TAZOBACTAM [Concomitant]
     Indication: CHOLANGITIS

REACTIONS (5)
  - PNEUMOTHORAX [None]
  - CIRCULATORY COLLAPSE [None]
  - PLATELET COUNT DECREASED [None]
  - DRUG INEFFECTIVE [None]
  - FUNGAL INFECTION [None]
